FAERS Safety Report 19745278 (Version 1)
Quarter: 2021Q3

REPORT INFORMATION
  Report Type: Report from Study
  Country: CZ (occurrence: CZ)
  Receive Date: 20210825
  Receipt Date: 20210825
  Transmission Date: 20211014
  Serious: Yes (Other)
  Sender: FDA-Public Use
  Company Number: CZ-MYLANLABS-2021M1055419

PATIENT
  Sex: Female

DRUGS (2)
  1. METHOTREXATE. [Concomitant]
     Active Substance: METHOTREXATE
     Indication: RHEUMATOID ARTHRITIS
     Dosage: 7.5 MILLIGRAM, QW
     Route: 048
     Dates: start: 20200923
  2. HULIO [Suspect]
     Active Substance: ADALIMUMAB-FKJP
     Indication: RHEUMATOID ARTHRITIS
     Dosage: 40 MILLIGRAM, Q2W ONCE IN 2 WEEKS
     Route: 058
     Dates: start: 20190918, end: 20210616

REACTIONS (1)
  - Drug ineffective [Unknown]

NARRATIVE: CASE EVENT DATE: 20210616
